FAERS Safety Report 8014654-4 (Version None)
Quarter: 2011Q4

REPORT INFORMATION
  Report Type: 
  Country: None (occurrence: None)
  Receive Date: 20111229
  Receipt Date: 20111219
  Transmission Date: 20120403
  Serious: Yes (Hospitalization)
  Sender: FDA-Public Use
  Company Number: PHHY2011ES110170

PATIENT
  Age: 77 Year
  Sex: Female

DRUGS (9)
  1. POTASSIUM CARBONATE [Suspect]
  2. NEORAL [Interacting]
     Indication: LIVER TRANSPLANT
     Dosage: 1.2 ML, QD
  3. CHLORTHALIDONE [Interacting]
     Indication: RENAL FAILURE CHRONIC
     Dosage: 50 MG, QD
     Route: 048
     Dates: start: 20090220, end: 20090224
  4. ENALAPRIL MALEATE [Interacting]
     Indication: HYPERTENSION
     Dosage: 20 MG, QD
     Route: 048
     Dates: start: 20080101, end: 20090224
  5. DIGOXIN [Interacting]
     Indication: ATRIAL FIBRILLATION
     Dosage: 0.1 MG, QD
     Route: 048
     Dates: start: 20030101, end: 20090224
  6. ASCORBIC ACID [Interacting]
     Dosage: 1 DF, QD
     Route: 048
     Dates: start: 20080311, end: 20090224
  7. SPIRONOLACTONE [Interacting]
     Dosage: 50 MG, QD
     Route: 048
     Dates: start: 20090220, end: 20090224
  8. FUROSEMIDE [Interacting]
     Indication: RENAL FAILURE CHRONIC
     Dosage: 40 MG, QD
     Route: 048
     Dates: start: 20080304, end: 20090224
  9. ASPARTIC ACID [Interacting]
     Dosage: 1 DF, QD
     Route: 048
     Dates: start: 20080311, end: 20090224

REACTIONS (4)
  - RENAL FAILURE ACUTE [None]
  - DRUG INTERACTION [None]
  - HYPERKALAEMIA [None]
  - BLOOD CREATININE INCREASED [None]
